FAERS Safety Report 7233353-X (Version None)
Quarter: 2011Q1

REPORT INFORMATION
  Report Type: 
  Country: None (occurrence: None)
  Receive Date: 20110119
  Receipt Date: 20110114
  Transmission Date: 20110831
  Serious: Yes (Other)
  Sender: FDA-Public Use
  Company Number: DE-ABBOTT-11P-062-0697455-00

PATIENT
  Sex: Female

DRUGS (1)
  1. EPROSARTAN [Suspect]
     Indication: PRODUCT USED FOR UNKNOWN INDICATION
     Route: 048

REACTIONS (4)
  - DIARRHOEA [None]
  - LACTOSE INTOLERANCE [None]
  - HAEMOGLOBIN DECREASED [None]
  - ILEITIS [None]
